FAERS Safety Report 8202840-X (Version None)
Quarter: 2012Q1

REPORT INFORMATION
  Report Type: 
  Country: None (occurrence: None)
  Receive Date: 20120312
  Receipt Date: 20120312
  Transmission Date: 20120608
  Serious: No
  Sender: FDA-Public Use
  Company Number: None

PATIENT
  Age: 22 Year
  Sex: Male
  Weight: 68.038 kg

DRUGS (2)
  1. LATUDA [Suspect]
     Indication: HALLUCINATION, AUDITORY
     Route: 048
     Dates: start: 20120227, end: 20120308
  2. LATUDA [Concomitant]
     Dosage: 1
     Route: 048
     Dates: start: 20120227, end: 20120308

REACTIONS (4)
  - INSOMNIA [None]
  - DROOLING [None]
  - TREMOR [None]
  - MUSCLE TWITCHING [None]
